FAERS Safety Report 9470687 (Version 1)
Quarter: 2013Q3

REPORT INFORMATION
  Report Type: Report from Study
  Country: US (occurrence: US)
  Receive Date: 20130822
  Receipt Date: 20130822
  Transmission Date: 20140515
  Serious: Yes (Other)
  Sender: FDA-Public Use
  Company Number: US-ABBOTT-13P-163-1133488-00

PATIENT
  Sex: Male
  Weight: 74.91 kg

DRUGS (2)
  1. HUMIRA [Suspect]
     Indication: ANKYLOSING SPONDYLITIS
     Dates: start: 201206, end: 201306
  2. HUMIRA [Suspect]
     Dates: start: 201306

REACTIONS (8)
  - Intraocular pressure increased [Recovered/Resolved]
  - Migraine [Recovered/Resolved]
  - Glaucoma [Unknown]
  - Back pain [Recovered/Resolved]
  - Uveitis [Not Recovered/Not Resolved]
  - Respiratory disorder [Recovered/Resolved]
  - Photopsia [Recovered/Resolved]
  - Cataract [Recovered/Resolved]
